FAERS Safety Report 12702301 (Version 1)
Quarter: 2016Q3

REPORT INFORMATION
  Report Type: Spontaneous
  Country: US (occurrence: US)
  Receive Date: 20160831
  Receipt Date: 20160831
  Transmission Date: 20161109
  Serious: Yes (Other)
  Sender: FDA-Public Use
  Company Number: US-AMGEN-USASP2016112088

PATIENT
  Age: 56 Year
  Sex: Female

DRUGS (9)
  1. PROLIA [Suspect]
     Active Substance: DENOSUMAB
     Indication: OSTEOPENIA
     Dosage: UNK
     Route: 065
  2. ASA [Concomitant]
     Active Substance: ASPIRIN
     Dosage: UNK, QD
     Route: 065
  3. TOPAMAX [Concomitant]
     Active Substance: TOPIRAMATE
     Route: 065
  4. LORAZEPAM. [Concomitant]
     Active Substance: LORAZEPAM
  5. LOSARTAN. [Concomitant]
     Active Substance: LOSARTAN
  6. CALCIUM [Concomitant]
     Active Substance: CALCIUM
     Route: 065
  7. PHENOBARBITAL. [Concomitant]
     Active Substance: PHENOBARBITAL
     Route: 065
  8. FISH OIL [Concomitant]
     Active Substance: FISH OIL
     Route: 065
  9. VITAMIN D [Concomitant]
     Active Substance: CHOLECALCIFEROL
     Route: 065

REACTIONS (10)
  - Seizure [Unknown]
  - Loose tooth [Unknown]
  - Arthropathy [Unknown]
  - Tendon rupture [Unknown]
  - Off label use [Unknown]
  - Trismus [Recovered/Resolved]
  - Bone pain [Unknown]
  - Tooth malformation [Unknown]
  - Arthralgia [Unknown]
  - Bone disorder [Unknown]

NARRATIVE: CASE EVENT DATE: 201603
